FAERS Safety Report 5721434-9 (Version None)
Quarter: 2008Q2

REPORT INFORMATION
  Report Type: 
  Country: None (occurrence: None)
  Receive Date: 20080428
  Receipt Date: 20080428
  Transmission Date: 20081010
  Serious: No
  Sender: FDA-Public Use
  Company Number: None

PATIENT
  Age: 67 Year
  Sex: Female
  Weight: 57.1532 kg

DRUGS (1)
  1. LEVAQUIN [Suspect]
     Indication: INFECTION PROPHYLAXIS
     Dosage: 500MG 1 PER DAY
     Dates: start: 20070629, end: 20070703

REACTIONS (10)
  - ADVERSE DRUG REACTION [None]
  - ARTHRALGIA [None]
  - BALANCE DISORDER [None]
  - DYSSTASIA [None]
  - LIP BLISTER [None]
  - MUSCULAR WEAKNESS [None]
  - NEUROPATHY PERIPHERAL [None]
  - PAIN IN EXTREMITY [None]
  - TENDON RUPTURE [None]
  - TREMOR [None]
